FAERS Safety Report 7806709-1 (Version None)
Quarter: 2011Q4

REPORT INFORMATION
  Report Type: 
  Country: None (occurrence: None)
  Receive Date: 20111011
  Receipt Date: 20110930
  Transmission Date: 20120403
  Serious: Yes (Hospitalization)
  Sender: FDA-Public Use
  Company Number: US-JNJFOC-20100704522

PATIENT
  Sex: Male
  Weight: 74.39 kg

DRUGS (7)
  1. ANTIHISTAMINE [Concomitant]
     Indication: PREMEDICATION
  2. REMICADE [Suspect]
     Route: 042
     Dates: start: 20020501, end: 20081203
  3. MERCAPTOPURINE [Suspect]
     Indication: CROHN'S DISEASE
     Route: 065
  4. STEROIDS NOS [Concomitant]
     Indication: PREMEDICATION
  5. HUMIRA [Suspect]
     Indication: CROHN'S DISEASE
     Route: 065
  6. ACETAMINOPHEN [Concomitant]
     Indication: PREMEDICATION
  7. REMICADE [Suspect]
     Indication: CROHN'S DISEASE
     Dosage: 6 INFUSIONS
     Route: 042

REACTIONS (1)
  - RENAL CELL CARCINOMA [None]
